FAERS Safety Report 5701515-6 (Version None)
Quarter: 2008Q2

REPORT INFORMATION
  Report Type: 
  Country: None (occurrence: None)
  Receive Date: 20080407
  Receipt Date: 20080321
  Transmission Date: 20081010
  Serious: Yes (Other)
  Sender: FDA-Public Use
  Company Number: JPI-P-003242

PATIENT
  Sex: Male

DRUGS (4)
  1. LUVOX [Suspect]
     Indication: DEPRESSION
     Dosage: (150 MG, 1 D), ORAL; (75 MG, 1 D), ORAL; (25 MG, 1 D), ORAL
     Route: 048
     Dates: start: 20060101
  2. AMANTADINE HCL [Suspect]
     Indication: DRUG USE FOR UNKNOWN INDICATION
     Dosage: ORAL; (2 DOSAGE FORMS, D), ORAL
     Route: 048
  3. DONEPEZIL HCL [Suspect]
     Indication: DRUG USE FOR UNKNOWN INDICATION
     Dosage: (5 MG, D), ORAL
     Route: 048
  4. LEVODOPA/BENSERAZIDE (LEVODOPA W/ BENSERAZIDE/) [Concomitant]

REACTIONS (2)
  - DEMENTIA [None]
  - PARKINSON'S DISEASE [None]
